FAERS Safety Report 6528750-1 (Version None)
Quarter: 2009Q4

REPORT INFORMATION
  Report Type: 
  Country: None (occurrence: None)
  Receive Date: 20091222
  Receipt Date: 20091209
  Transmission Date: 20100525
  Serious: Yes (Death)
  Sender: FDA-Public Use
  Company Number: B0617602A

PATIENT
  Age: 44 Year
  Sex: Male

DRUGS (6)
  1. PREDNISOLONE TABLET (PREDNISOLONE) (GENERIC) [Suspect]
     Indication: ADRENOCORTICAL STEROID THERAPY
     Dosage: 40 MG / PER DAY / ORAL
     Route: 048
  2. FLUTICASONE PROPIONATE          (FLUTICASONE PROPIONATE)  (GENERIC) [Suspect]
     Indication: CHRONIC OBSTRUCTIVE PULMONARY DISEASE
  3. ALBUTEROL SULFATE AUTOHALER [Concomitant]
  4. SALMETEROL XINAFOATE [Concomitant]
  5. THEOPHYLLINE [Concomitant]
  6. OXYGEN [Concomitant]

REACTIONS (28)
  - ABDOMINAL DISTENSION [None]
  - ABDOMINAL TENDERNESS [None]
  - BLOOD CREATINE INCREASED [None]
  - BLOOD GLUCOSE INCREASED [None]
  - BLOOD PH DECREASED [None]
  - BLOOD SODIUM DECREASED [None]
  - CHEST DISCOMFORT [None]
  - CHRONIC OBSTRUCTIVE PULMONARY DISEASE [None]
  - CONDITION AGGRAVATED [None]
  - CONSTIPATION [None]
  - DYSPNOEA [None]
  - ESCHERICHIA INFECTION [None]
  - GASTROINTESTINAL SOUNDS ABNORMAL [None]
  - HAEMOGLOBIN DECREASED [None]
  - HAEMOPTYSIS [None]
  - HYPOTENSION [None]
  - ILEAL ULCER [None]
  - KLEBSIELLA INFECTION [None]
  - MUCOSAL HAEMORRHAGE [None]
  - MULTI-ORGAN FAILURE [None]
  - PCO2 INCREASED [None]
  - PRODUCTIVE COUGH [None]
  - PSEUDOMONAS INFECTION [None]
  - PULMONARY ALVEOLAR HAEMORRHAGE [None]
  - SPUTUM CULTURE POSITIVE [None]
  - SPUTUM DISCOLOURED [None]
  - STRONGYLOIDIASIS [None]
  - VOMITING [None]
